FAERS Safety Report 11877852 (Version 2)
Quarter: 2016Q3

REPORT INFORMATION
  Report Type: Spontaneous
  Country: US (occurrence: US)
  Receive Date: 20151230
  Receipt Date: 20160711
  Transmission Date: 20161109
  Serious: Yes (Disabling, Other)
  Sender: FDA-Public Use
  Company Number: US-DRREDDYS-USA/USA/15/0055077

PATIENT
  Age: 23 Year
  Sex: Female
  Weight: 43.54 kg

DRUGS (3)
  1. MOXIFLOXACIN. [Suspect]
     Active Substance: MOXIFLOXACIN
     Indication: OROPHARYNGEAL PAIN
     Route: 065
  2. MOXIFLOXACIN. [Suspect]
     Active Substance: MOXIFLOXACIN
     Indication: PYREXIA
  3. CIPROFLOXACIN. [Suspect]
     Active Substance: CIPROFLOXACIN
     Indication: DIARRHOEA INFECTIOUS
     Route: 065

REACTIONS (53)
  - Disturbance in attention [Unknown]
  - Gastrointestinal pain [Unknown]
  - Gastrooesophageal reflux disease [Unknown]
  - Impaired gastric emptying [Unknown]
  - Mydriasis [Unknown]
  - Ammonia increased [Unknown]
  - Vomiting [Unknown]
  - Hypotension [Unknown]
  - Muscle contractions involuntary [Unknown]
  - Multiple chemical sensitivity [Unknown]
  - Arthralgia [Unknown]
  - Autonomic neuropathy [Unknown]
  - Cognitive disorder [Unknown]
  - Abdominal pain [Unknown]
  - Dry eye [Unknown]
  - Sensory disturbance [Unknown]
  - Chronic gastritis [Unknown]
  - Ulcerative keratitis [Unknown]
  - Amnesia [Unknown]
  - Migraine [Unknown]
  - Respiratory tract infection [Unknown]
  - Seizure [Unknown]
  - Muscular weakness [Unknown]
  - Tremor [Unknown]
  - Alopecia [Unknown]
  - Candida test positive [Unknown]
  - Respiratory muscle weakness [Unknown]
  - Fatigue [Unknown]
  - Sinusitis [Unknown]
  - Decreased appetite [Unknown]
  - Orthostatic intolerance [Unknown]
  - Mood swings [Unknown]
  - Tendonitis [Unknown]
  - Autonomic nervous system imbalance [Unknown]
  - Anaemia [Unknown]
  - Toxicity to various agents [Unknown]
  - Dizziness [Unknown]
  - Weight decreased [Unknown]
  - Dry mouth [Unknown]
  - Nausea [Unknown]
  - Tachycardia [Unknown]
  - Feeling abnormal [Unknown]
  - Insomnia [Unknown]
  - Micturition urgency [Unknown]
  - Myalgia [Unknown]
  - C-reactive protein increased [Unknown]
  - Diarrhoea [Unknown]
  - Irritable bowel syndrome [Unknown]
  - Food intolerance [Unknown]
  - Dyspnoea [Unknown]
  - Postural orthostatic tachycardia syndrome [Unknown]
  - Decreased immune responsiveness [Unknown]
  - Leukopenia [Unknown]
